FAERS Safety Report 6847655-X (Version None)
Quarter: 2010Q3

REPORT INFORMATION
  Report Type: 
  Country: None (occurrence: None)
  Receive Date: 20100716
  Receipt Date: 20100705
  Transmission Date: 20110219
  Serious: Yes (Other)
  Sender: FDA-Public Use
  Company Number: PHHY2010CA44467

PATIENT
  Sex: Female

DRUGS (1)
  1. ACLASTA [Suspect]
     Indication: OSTEOPOROSIS
     Dosage: UNK
     Dates: start: 20090709

REACTIONS (5)
  - ASTHENIA [None]
  - EPISTAXIS [None]
  - FATIGUE [None]
  - PNEUMONIA [None]
  - SCAB [None]
